FAERS Safety Report 5473985-2 (Version None)
Quarter: 2007Q3

REPORT INFORMATION
  Report Type: 
  Country: None (occurrence: None)
  Receive Date: 20070830
  Receipt Date: 20070227
  Transmission Date: 20080115
  Serious: Yes (Hospitalization, Other)
  Sender: FDA-Public Use
  Company Number: 237110

PATIENT
  Age: 57 Year
  Sex: Female

DRUGS (6)
  1. XOLAIR [Suspect]
     Indication: ASTHMA
     Dosage: 300, Q2W, SUBCUTANEOUS
     Route: 058
     Dates: start: 20040816, end: 20061116
  2. ANTI-SEIZURE MEDICATION (UNK INGREDIENTS) (ANTICONVULSANTS) [Concomitant]
  3. FORADIL [Concomitant]
  4. PULMICORT [Concomitant]
  5. SINGULAIR [Concomitant]
  6. ALBUTEROL (ALBUTEROL/ALBUTEROL SULFATE) [Concomitant]

REACTIONS (1)
  - NON-SMALL CELL LUNG CANCER [None]
